FAERS Safety Report 16844039 (Version 2)
Quarter: 2019Q3

REPORT INFORMATION
  Report Type: Report from Study
  Country: None (occurrence: BE)
  Receive Date: 20190924
  Receipt Date: 20190926
  Transmission Date: 20191005
  Serious: Yes (Hospitalization, Other)
  Sender: FDA-Public Use
  Company Number: BE-ABBVIE-19K-013-2934768-00

PATIENT
  Sex: Female

DRUGS (3)
  1. DUODOPA [Suspect]
     Active Substance: CARBIDOPA\LEVODOPA
     Indication: PARKINSON^S DISEASE
     Dosage: MD=2ML, CD=1.4ML/HR DURING 16HRS, ED=1ML
     Route: 050
     Dates: start: 20190917, end: 20190918
  2. DUODOPA [Suspect]
     Active Substance: CARBIDOPA\LEVODOPA
     Dosage: DOSES CONTINUOUSLY MONITORED AND ADAPTED
     Route: 050
     Dates: start: 20190918, end: 20190920
  3. DUODOPA [Suspect]
     Active Substance: CARBIDOPA\LEVODOPA
     Dosage: MD=3ML, CD=2.1ML/HR DURING 16HRS, ED=1ML
     Route: 050
     Dates: start: 20190920

REACTIONS (7)
  - Thrombosis [Unknown]
  - Anxiety [Not Recovered/Not Resolved]
  - Device dislocation [Recovered/Resolved]
  - Loss of consciousness [Unknown]
  - Syncope [Unknown]
  - Emotional disorder [Unknown]
  - Hypertension [Unknown]

NARRATIVE: CASE EVENT DATE: 201909
